FAERS Safety Report 19418023 (Version 1)
Quarter: 2021Q2

REPORT INFORMATION
  Report Type: Spontaneous
  Country: US (occurrence: US)
  Receive Date: 20210615
  Receipt Date: 20210615
  Transmission Date: 20210717
  Serious: Yes (Other)
  Sender: FDA-Public Use
  Company Number: US-MACLEODS PHARMACEUTICALS US LTD-MAC2021031484

PATIENT

DRUGS (4)
  1. METHOTREXATE. [Concomitant]
     Active Substance: METHOTREXATE
     Dosage: UNK, 10 MG/SQ. METER, BODY SURFACE AREA.D (WITH 12?MG MAX DOSE), TWO OCCASIONS BEFORE TRANSPLANT
     Route: 037
  2. ACYCLOVIR. [Suspect]
     Active Substance: ACYCLOVIR
     Indication: GENITAL HERPES SIMPLEX
     Dosage: UNK UNK, TID, 750 MG/M2 BODY SURFACE AREA.D, EVRY 8 HRS
     Route: 042
  3. METHOTREXATE. [Concomitant]
     Active Substance: METHOTREXATE
     Indication: PROPHYLAXIS AGAINST GRAFT VERSUS HOST DISEASE
     Dosage: UNK
     Route: 042
  4. METHOTREXATE. [Concomitant]
     Active Substance: METHOTREXATE
     Dosage: UNK, 10 MG/SQ. METER, BODY SURFACE AREA.D, EVERY 14 DAYS FROM ON DAY 32 TILL 102 DAY
     Route: 037

REACTIONS (5)
  - Tremor [Recovered/Resolved]
  - Nausea [Recovered/Resolved]
  - Neurotoxicity [Recovered/Resolved]
  - Arrhythmia [Not Recovered/Not Resolved]
  - Alanine aminotransferase increased [Unknown]
